FAERS Safety Report 19176003 (Version 1)
Quarter: 2021Q2

REPORT INFORMATION
  Report Type: Spontaneous
  Country: GB (occurrence: GB)
  Receive Date: 20210423
  Receipt Date: 20210423
  Transmission Date: 20210717
  Serious: Yes (Hospitalization, Other)
  Sender: FDA-Public Use
  Company Number: GB-PURDUE-USA-2020-0249959

PATIENT
  Age: 67 Year
  Sex: Female

DRUGS (11)
  1. FOSTAIR [Concomitant]
     Active Substance: BECLOMETHASONE\FORMOTEROL
  2. OMEPRAZOLE. [Concomitant]
     Active Substance: OMEPRAZOLE
  3. PREGABALIN. [Concomitant]
     Active Substance: PREGABALIN
  4. BUPRENORPHINE. [Suspect]
     Active Substance: BUPRENORPHINE
     Indication: PAIN
     Dosage: 70 MCG, Q1H
     Route: 062
  5. PARACETAMOL [Concomitant]
     Active Substance: ACETAMINOPHEN
  6. PIRITON [Concomitant]
     Active Substance: CHLORPHENIRAMINE MALEATE
  7. DALTEPARIN SODIUM [Concomitant]
     Active Substance: DALTEPARIN SODIUM
  8. CETIRIZINE DIHYDROCHLORIDE [Concomitant]
     Active Substance: CETIRIZINE HYDROCHLORIDE
  9. SALBUTAMOL [Concomitant]
     Active Substance: ALBUTEROL
  10. CODEINE [Suspect]
     Active Substance: CODEINE
     Indication: PAIN
     Dosage: 120 MG, DAILY
     Route: 048
  11. VENLAFAXINE [Concomitant]
     Active Substance: VENLAFAXINE HYDROCHLORIDE

REACTIONS (2)
  - Small intestinal obstruction [Unknown]
  - Condition aggravated [Unknown]
